FAERS Safety Report 7700772-4 (Version None)
Quarter: 2011Q3

REPORT INFORMATION
  Report Type: 
  Country: None (occurrence: None)
  Receive Date: 20110822
  Receipt Date: 20110809
  Transmission Date: 20111222
  Serious: Yes (Other)
  Sender: FDA-Public Use
  Company Number: US-ROCHE-755051

PATIENT
  Sex: Female

DRUGS (1)
  1. AVASTIN [Suspect]
     Dosage: FOUR INJECTIONS.
     Route: 065

REACTIONS (4)
  - MACULAR DEGENERATION [None]
  - VITREOUS FLOATERS [None]
  - DRUG INEFFECTIVE [None]
  - VISUAL IMPAIRMENT [None]
